FAERS Safety Report 24586354 (Version 1)
Quarter: 2024Q4

REPORT INFORMATION
  Report Type: Report from Study
  Country: US (occurrence: US)
  Receive Date: 20241106
  Receipt Date: 20241106
  Transmission Date: 20250115
  Serious: Yes (Other)
  Sender: JOHNSON AND JOHNSON
  Company Number: US-JNJFOC-20241079073

PATIENT
  Age: 5 Decade
  Sex: Female

DRUGS (2)
  1. SPRAVATO [Suspect]
     Active Substance: ESKETAMINE
     Indication: Depression
     Dosage: ^56 MG, 2 TOTAL DOSES^
     Dates: start: 20230801, end: 20230803
  2. SPRAVATO [Suspect]
     Active Substance: ESKETAMINE
     Dosage: ^84 MG, 89 TOTAL DOSES^
     Dates: start: 20230808, end: 20240930

REACTIONS (8)
  - Suicidal ideation [Unknown]
  - Product dose omission issue [Unknown]
  - Conversion disorder [Unknown]
  - Off label use [Unknown]
  - Depression [Unknown]
  - Lethargy [Unknown]
  - Anxiety [Unknown]
  - Panic attack [Unknown]
